FAERS Safety Report 8847868 (Version 5)
Quarter: 2013Q1

REPORT INFORMATION
  Report Type: Spontaneous
  Country: US (occurrence: US)
  Receive Date: 20121018
  Receipt Date: 20130116
  Transmission Date: 20140127
  Serious: Yes (Hospitalization, Other)
  Sender: FDA-Public Use
  Company Number: US-009507513-1202USA04366

PATIENT
  Sex: 0

DRUGS (4)
  1. FOSAMAX [Suspect]
     Indication: OSTEOPOROSIS
     Dosage: 10 MG, QD
     Route: 048
     Dates: start: 19980826, end: 20021213
  2. FOSAMAX [Suspect]
     Dosage: 70 MG, UNK
     Route: 048
     Dates: start: 19980826, end: 20021213
  3. VITAMIN D (UNSPECIFIED) [Concomitant]
     Dosage: 800 IU, QD
  4. CALCIUM (UNSPECIFIED) [Concomitant]
     Dosage: 1500 MG, UNK

REACTIONS (19)
  - Femur fracture [Unknown]
  - Hip arthroplasty [Unknown]
  - Intramedullary rod insertion [Recovered/Resolved]
  - Osteonecrosis [Unknown]
  - Gastrointestinal carcinoma [Unknown]
  - Surgery [Unknown]
  - Appendicectomy [Unknown]
  - Hypertension [Unknown]
  - Blood cholesterol increased [Unknown]
  - Drug intolerance [Unknown]
  - Scoliosis [Unknown]
  - Cyst [Unknown]
  - Spinal osteoarthritis [Unknown]
  - Scoliosis [Unknown]
  - Spinal osteoarthritis [Unknown]
  - Osteopenia [Unknown]
  - Gastrointestinal disorder [Unknown]
  - Arthralgia [Unknown]
  - Gastritis [Unknown]
